FAERS Safety Report 14673715 (Version 1)
Quarter: 2018Q1

REPORT INFORMATION
  Report Type: Spontaneous
  Country: US (occurrence: US)
  Receive Date: 20180323
  Receipt Date: 20180323
  Transmission Date: 20180509
  Serious: No
  Sender: FDA-Public Use
  Company Number: US-BRISTOL-MYERS SQUIBB COMPANY-BMS-2018-019909

PATIENT
  Sex: Female
  Weight: 112.9 kg

DRUGS (3)
  1. XELJANZ XR [Suspect]
     Active Substance: TOFACITINIB CITRATE
     Indication: RHEUMATOID ARTHRITIS
     Dosage: 11 MG, UNK
     Route: 048
     Dates: start: 2017
  2. DILTIAZEM. [Suspect]
     Active Substance: DILTIAZEM
     Indication: THROMBOSIS PROPHYLAXIS
     Dosage: 180 MG, QD
     Route: 048
     Dates: start: 20180222, end: 20180223
  3. APIXABAN [Suspect]
     Active Substance: APIXABAN
     Indication: PRODUCT USED FOR UNKNOWN INDICATION
     Dosage: 5 MG, BID
     Route: 048
     Dates: start: 20180222, end: 20180223

REACTIONS (1)
  - No adverse event [Unknown]
